FAERS Safety Report 5130920-4 (Version None)
Quarter: 2006Q3

REPORT INFORMATION
  Report Type: 
  Country: None (occurrence: None)
  Receive Date: 20060829
  Receipt Date: 20060711
  Transmission Date: 20061208
  Serious: No
  Sender: FDA-Public Use
  Company Number: PHEH2006US08218

PATIENT
  Age: 21 Year
  Sex: Female
  Weight: 62 kg

DRUGS (3)
  1. EXJADE [Suspect]
     Indication: THALASSAEMIA
     Dosage: 20 MG/KG, QD, ORAL
     Route: 048
     Dates: start: 20060425, end: 20060504
  2. YASMIN [Concomitant]
  3. FOLIC ACID [Concomitant]

REACTIONS (4)
  - DRUG ERUPTION [None]
  - RASH ERYTHEMATOUS [None]
  - RASH PRURITIC [None]
  - URTICARIA [None]
